FAERS Safety Report 13332557 (Version 1)
Quarter: 2017Q1

REPORT INFORMATION
  Report Type: Spontaneous
  Country: US (occurrence: US)
  Receive Date: 20170314
  Receipt Date: 20170314
  Transmission Date: 20170428
  Serious: Yes (Hospitalization)
  Sender: FDA-Public Use
  Company Number: None

PATIENT
  Age: 56 Year
  Sex: Male
  Weight: 104.8 kg

DRUGS (1)
  1. CISPLATIN. [Suspect]
     Active Substance: CISPLATIN
     Dates: end: 20161227

REACTIONS (5)
  - Dehydration [None]
  - Mucosal inflammation [None]
  - Weight decreased [None]
  - Feeding disorder [None]
  - Dysphagia [None]

NARRATIVE: CASE EVENT DATE: 20170116
